FAERS Safety Report 19856663 (Version 1)
Quarter: 2021Q3

REPORT INFORMATION
  Report Type: Spontaneous
  Country: US (occurrence: US)
  Receive Date: 20210920
  Receipt Date: 20210920
  Transmission Date: 20211014
  Serious: No
  Sender: FDA-Public Use
  Company Number: US-SA-2021SA307346

PATIENT
  Sex: Male

DRUGS (3)
  1. ALLEGRA ALLERGY [Suspect]
     Active Substance: FEXOFENADINE HYDROCHLORIDE
     Indication: SMOKE SENSITIVITY
  2. MULTAQ [Concomitant]
     Active Substance: DRONEDARONE
     Dosage: UNK
  3. ALLEGRA ALLERGY [Suspect]
     Active Substance: FEXOFENADINE HYDROCHLORIDE
     Indication: SEASONAL ALLERGY
     Dosage: UNK

REACTIONS (4)
  - Hypertension [Unknown]
  - Ear congestion [Unknown]
  - Rhinorrhoea [Unknown]
  - Drainage [Unknown]
